FAERS Safety Report 7918619-X (Version None)
Quarter: 2011Q4

REPORT INFORMATION
  Report Type: 
  Country: None (occurrence: None)
  Receive Date: 20111114
  Receipt Date: 20111104
  Transmission Date: 20120403
  Serious: Yes (Other)
  Sender: FDA-Public Use
  Company Number: LEO-2011-00916

PATIENT
  Age: 63 Year
  Sex: Female

DRUGS (7)
  1. ZELITREX (VALACCILOVIR HYDROCHLORIDE) (500 MILLIGRAM, TABLET) [Suspect]
     Indication: PROPHYLACTIC CHEMOTHERAPY
     Dosage: 1000 MG (500 MG,2 IN 1 D),ORAL
     Route: 048
     Dates: start: 20110913
  2. DEXAMETHASONE [Suspect]
     Indication: CHEMOTHERAPY
     Dosage: (DAY 1, 4, 8, 11 OF CHEMOTHERAPY),ORAL
     Route: 048
     Dates: start: 20110913
  3. VELCADE [Suspect]
     Indication: CHEMOTHERAPY
     Dosage: 1.3 MG/M2,SUBCUTANEOUS
     Route: 059
     Dates: start: 20110913
  4. BACTRIM DS [Suspect]
     Indication: PROPHYLACTIC CHEMOTHERAPY
     Dosage: (3 DOSAGE FORMS),ORAL
     Route: 048
     Dates: start: 20110913, end: 20110923
  5. AMOXICILLIN [Suspect]
     Indication: PROPHYLACTIC CHEMOTHERAPY
     Dosage: 2 GM (2 GM),ORAL
     Route: 048
     Dates: start: 20110913
  6. INNOHEP [Suspect]
     Indication: THROMBOSIS PROPHYLAXIS
     Dosage: 4500 IU (4500 IU),SUBCUTANEOUS
     Route: 058
     Dates: start: 20110913
  7. REVLIMID [Suspect]
     Indication: CHEMOTHERAPY
     Dosage: 25 MG (25 MG,1 IN 1 D),ORAL
     Route: 048
     Dates: start: 20110913

REACTIONS (1)
  - CYTOLYTIC HEPATITIS [None]
